FAERS Safety Report 16785021 (Version 1)
Quarter: 2019Q3

REPORT INFORMATION
  Report Type: Spontaneous
  Country: US (occurrence: US)
  Receive Date: 20190909
  Receipt Date: 20190909
  Transmission Date: 20191005
  Serious: Yes (Death, Hospitalization, Other)
  Sender: FDA-Public Use
  Company Number: US-MYLANLABS-2019M1083657

PATIENT
  Age: 66 Year
  Sex: Female

DRUGS (8)
  1. EPINEPHRINE. [Suspect]
     Active Substance: EPINEPHRINE
     Indication: VENTRICULAR FIBRILLATION
     Dosage: SHE RECEIVED MAXIMUM DOSE OF EPINEPHRINE
     Route: 065
  2. NOREPINEPHRINE. [Suspect]
     Active Substance: NOREPINEPHRINE
     Indication: CARDIAC ARREST
     Dosage: SHE RECEIVED MAXIMUM DOSE OF NOREPINEPHRINE
     Route: 065
  3. AMIODARONE [Suspect]
     Active Substance: AMIODARONE
     Indication: PRODUCT USED FOR UNKNOWN INDICATION
     Dosage: UNK
     Route: 065
  4. VASOPRESSIN. [Suspect]
     Active Substance: VASOPRESSIN
     Indication: CARDIAC ARREST
     Dosage: SHE RECEIVED MAXIMUM DOSE OF VASOPRESSIN
     Route: 065
  5. DILTIAZEM. [Suspect]
     Active Substance: DILTIAZEM
     Indication: PRODUCT USED FOR UNKNOWN INDICATION
     Dosage: UNK
     Route: 065
  6. NOREPINEPHRINE. [Suspect]
     Active Substance: NOREPINEPHRINE
     Indication: VENTRICULAR FIBRILLATION
  7. VASOPRESSIN. [Suspect]
     Active Substance: VASOPRESSIN
     Indication: VENTRICULAR FIBRILLATION
  8. EPINEPHRINE. [Suspect]
     Active Substance: EPINEPHRINE
     Indication: CARDIAC ARREST

REACTIONS (5)
  - Cardiogenic shock [Fatal]
  - Drug ineffective [Fatal]
  - Completed suicide [Fatal]
  - Ventricular fibrillation [Fatal]
  - Cardiac arrest [Fatal]
